FAERS Safety Report 4715596-X (Version None)
Quarter: 2005Q3

REPORT INFORMATION
  Report Type: 
  Country: None (occurrence: None)
  Receive Date: 20050713
  Receipt Date: 20050701
  Transmission Date: 20060218
  Serious: Yes (Life-Threatening, Hospitalization)
  Sender: FDA-Public Use
  Company Number: 2005FR-00072

PATIENT
  Age: 83 Year
  Sex: Male

DRUGS (8)
  1. ASPIRIN [Suspect]
     Dosage: 75 MG, ORAL
     Route: 048
     Dates: end: 20050608
  2. DICLOFENAC SODIUM [Concomitant]
  3. BISACODYL [Concomitant]
  4. FUROSEMIDE [Concomitant]
  5. LEVOTHYROXINE SODIUM [Concomitant]
  6. METFORMIN [Concomitant]
  7. NATEGLINIDE [Concomitant]
  8. SPIRONOLACTONE [Concomitant]

REACTIONS (1)
  - HAEMATEMESIS [None]
